FAERS Safety Report 8617313-X (Version None)
Quarter: 2012Q3

REPORT INFORMATION
  Report Type: 
  Country: None (occurrence: None)
  Receive Date: 20120823
  Receipt Date: 20120815
  Transmission Date: 20120928
  Serious: No
  Sender: FDA-Public Use
  Company Number: US-ASTRAZENECA-2012SE57945

PATIENT
  Age: 54 Year
  Sex: Male

DRUGS (1)
  1. CRESTOR [Suspect]
     Route: 048

REACTIONS (5)
  - NASOPHARYNGITIS [None]
  - SINUS DISORDER [None]
  - OROPHARYNGEAL PAIN [None]
  - MALAISE [None]
  - MULTIPLE ALLERGIES [None]
